FAERS Safety Report 4344112-X (Version None)
Quarter: 2004Q2

REPORT INFORMATION
  Report Type: 
  Country: None (occurrence: None)
  Receive Date: 20040422
  Receipt Date: 20040217
  Transmission Date: 20050107
  Serious: No
  Sender: FDA-Public Use
  Company Number: US-GLAXOSMITHKLINE-A0498522A

PATIENT
  Sex: Female

DRUGS (1)
  1. LEXIVA [Suspect]
     Indication: HIV INFECTION
     Route: 048
     Dates: start: 20040201

REACTIONS (2)
  - PARAESTHESIA ORAL [None]
  - PRURITUS [None]
